FAERS Safety Report 8902790 (Version 1)
Quarter: 2012Q4

REPORT INFORMATION
  Report Type: 
  Country: US (occurrence: US)
  Receive Date: 20121113
  Receipt Date: 20121113
  Transmission Date: 20130627
  Serious: No
  Sender: FDA-Public Use
  Company Number: US-PFIZER INC-2012280378

PATIENT
  Sex: Female

DRUGS (2)
  1. PREMARIN [Suspect]
     Dosage: 0.5 g, UNK
     Route: 067
  2. PREMARIN [Suspect]
     Dosage: 5 g, UNK
     Route: 067

REACTIONS (4)
  - Incorrect dose administered [Unknown]
  - Vulvovaginal swelling [Unknown]
  - Pyrexia [Unknown]
  - Discomfort [Unknown]
